FAERS Safety Report 7552203-5 (Version None)
Quarter: 2011Q2

REPORT INFORMATION
  Report Type: 
  Country: None (occurrence: None)
  Receive Date: 20110616
  Receipt Date: 20110609
  Transmission Date: 20111010
  Serious: Yes (Life-Threatening)
  Sender: FDA-Public Use
  Company Number: JP-MERCK-1104USA01960

PATIENT
  Age: 51 Year
  Sex: Female
  Weight: 45 kg

DRUGS (2)
  1. PHENOBARBITAL TAB [Suspect]
     Indication: BRAIN CONTUSION
     Route: 048
     Dates: start: 20100210, end: 20100308
  2. PEPCID RPD [Suspect]
     Indication: PROPHYLAXIS AGAINST GASTROINTESTINAL ULCER
     Route: 048
     Dates: start: 20100211, end: 20100318

REACTIONS (1)
  - STEVENS-JOHNSON SYNDROME [None]
